FAERS Safety Report 10176298 (Version 1)
Quarter: 2014Q2

REPORT INFORMATION
  Report Type: Spontaneous
  Country: GB (occurrence: None)
  Receive Date: 20140514
  Receipt Date: 20140514
  Transmission Date: 20141212
  Serious: Yes (Life-Threatening, Hospitalization)
  Sender: FDA-Public Use
  Company Number: FK201401738

PATIENT
  Age: 86 Year
  Sex: Female
  Weight: 50 kg

DRUGS (8)
  1. METHOTREXATE (MANUFACTURER UNKNOWN) (METHOTREXATE) (METHOTREXATE) [Suspect]
     Indication: RHEUMATOID ARTHRITIS
     Route: 048
     Dates: start: 20140416
  2. ADCAL D3 (LEKOVITCA) [Concomitant]
  3. ALENDRONIC ACID (ALENDRONIC ACID) [Concomitant]
  4. AMLODIPINE (AMLODIPINE) [Concomitant]
  5. AMLODIPINE (BENDROFLUMETHIAZIDE) [Concomitant]
  6. CHLORAMPHENICOL (CHLORAMPHENICOL) [Concomitant]
  7. CHLORAMPHENICOL (PARAMOL-118) [Concomitant]
  8. FOLIC ACID (FOLIC ACID) [Concomitant]

REACTIONS (3)
  - Haemorrhage intracranial [None]
  - Neutropenic sepsis [None]
  - Pancytopenia [None]
